FAERS Safety Report 15090557 (Version 2)
Quarter: 2018Q3

REPORT INFORMATION
  Report Type: Spontaneous
  Country: CA (occurrence: CA)
  Receive Date: 20180629
  Receipt Date: 20180711
  Transmission Date: 20181010
  Serious: Yes (Other)
  Sender: FDA-Public Use
  Company Number: CA-PFIZER INC-2017172373

PATIENT
  Age: 71 Year
  Sex: Female

DRUGS (13)
  1. IBRANCE [Suspect]
     Active Substance: PALBOCICLIB
     Indication: BREAST CANCER METASTATIC
     Dosage: 125 MG, DAILY FOR 21 DAYS, OFF 7 DAYS
     Route: 048
     Dates: start: 20170413
  2. DIGOXIN. [Concomitant]
     Active Substance: DIGOXIN
     Dosage: 250 UG, DAILY
  3. PANTOPRA [Concomitant]
     Dosage: 40 MG, DAILY
  4. LIPITOR [Concomitant]
     Active Substance: ATORVASTATIN CALCIUM
     Dosage: 20 MG, UNK
  5. IBRANCE [Suspect]
     Active Substance: PALBOCICLIB
     Dosage: 75 MG DAYS 1?21 OF 28 DAY CYCLE FOR 2 CYCLES
     Route: 048
     Dates: start: 201705
  6. ASA [Concomitant]
     Active Substance: ASPIRIN
     Dosage: UNK
  7. WARFARIN [Concomitant]
     Active Substance: WARFARIN
     Dosage: UNK
  8. LETROZOLE. [Concomitant]
     Active Substance: LETROZOLE
     Dosage: 1.5 UNK, DAILY
  9. COZAAR [Concomitant]
     Active Substance: LOSARTAN POTASSIUM
     Dosage: 50 MG, DAILY
  10. LANTUS [Concomitant]
     Active Substance: INSULIN GLARGINE
     Dosage: UNK
  11. METFORMIN [Concomitant]
     Active Substance: METFORMIN HYDROCHLORIDE
     Dosage: 850 MG, 2X/DAY
  12. IBRANCE [Suspect]
     Active Substance: PALBOCICLIB
     Dosage: 100 MG, 1 TAB 1X/DAY FOR 21 DAYS OF 28 DAYS CYCLE
     Route: 048
  13. DILTIAZEM CD [Concomitant]
     Active Substance: DILTIAZEM
     Dosage: 450 UNKNOWN EVERY 24H

REACTIONS (13)
  - Platelet count decreased [Recovering/Resolving]
  - Blood creatinine increased [Unknown]
  - Neutropenia [Recovering/Resolving]
  - Glomerular filtration rate decreased [Unknown]
  - Anaemia [Recovered/Resolved]
  - Hypochromasia [Recovered/Resolved]
  - Macrocytosis [Recovered/Resolved]
  - Red cell distribution width increased [Recovered/Resolved]
  - Monocyte count decreased [Unknown]
  - Renal impairment [Not Recovered/Not Resolved]
  - White blood cell count decreased [Recovered/Resolved]
  - Microcytosis [Unknown]
  - Lymphocyte count decreased [Unknown]

NARRATIVE: CASE EVENT DATE: 20180615
